FAERS Safety Report 6466334-4 (Version None)
Quarter: 2009Q4

REPORT INFORMATION
  Report Type: 
  Country: None (occurrence: None)
  Receive Date: 20091202
  Receipt Date: 20091126
  Transmission Date: 20100525
  Serious: Yes (Disabling)
  Sender: FDA-Public Use
  Company Number: DE-ROCHE-671744

PATIENT
  Sex: Male
  Weight: 85 kg

DRUGS (3)
  1. ROFERON-A [Suspect]
     Route: 065
     Dates: start: 20061001, end: 20080901
  2. ROFERON-A [Suspect]
     Route: 065
     Dates: start: 20080901, end: 20090401
  3. RAMIPRIL [Concomitant]

REACTIONS (2)
  - GAIT DISTURBANCE [None]
  - MUSCULAR WEAKNESS [None]
